FAERS Safety Report 5746398-3 (Version None)
Quarter: 2008Q2

REPORT INFORMATION
  Report Type: 
  Country: None (occurrence: None)
  Receive Date: 20080520
  Receipt Date: 20080520
  Transmission Date: 20081010
  Serious: Yes (Other)
  Sender: FDA-Public Use
  Company Number: None

PATIENT
  Age: 50 Year
  Sex: Female
  Weight: 85.7298 kg

DRUGS (1)
  1. REQUIP [Suspect]
     Indication: RESTLESS LEGS SYNDROME
     Dosage: 2 MG NIGHTLY PO
     Route: 048
     Dates: start: 20071027, end: 20080428

REACTIONS (3)
  - DYSPNOEA [None]
  - LOCALISED OEDEMA [None]
  - WEIGHT INCREASED [None]
